FAERS Safety Report 5476775-X (Version None)
Quarter: 2007Q4

REPORT INFORMATION
  Report Type: 
  Country: None (occurrence: None)
  Receive Date: 20071004
  Receipt Date: 20070925
  Transmission Date: 20080405
  Serious: Yes (Hospitalization, Other)
  Sender: FDA-Public Use
  Company Number: JP-JNJFOC-20070606365

PATIENT
  Sex: Male

DRUGS (6)
  1. LEVOFLOXACIN [Suspect]
     Indication: PNEUMONIA
     Route: 048
  2. MEROPEN [Suspect]
     Indication: DRUG USE FOR UNKNOWN INDICATION
     Route: 042
  3. MUCOSTA [Concomitant]
     Indication: GASTRITIS
     Route: 048
  4. FAMOTIDINE [Concomitant]
     Indication: GASTRITIS
     Route: 048
  5. BIOFERMIN [Concomitant]
     Route: 065
  6. MUCOSOLVAN [Concomitant]
     Indication: BRONCHIECTASIS
     Route: 048

REACTIONS (1)
  - INTERSTITIAL LUNG DISEASE [None]
